FAERS Safety Report 24670647 (Version 3)
Quarter: 2025Q3

REPORT INFORMATION
  Report Type: Spontaneous
  Country: US (occurrence: US)
  Receive Date: 20241127
  Receipt Date: 20250723
  Transmission Date: 20251021
  Serious: No
  Sender: BRISTOL-MYERS SQUIBB COMPANY
  Company Number: US-BRISTOL-MYERS SQUIBB COMPANY-2024-185498

PATIENT
  Age: 87 Year
  Sex: Female

DRUGS (3)
  1. REVLIMID [Suspect]
     Active Substance: LENALIDOMIDE
     Indication: Plasma cell myeloma
     Route: 048
     Dates: start: 202203
  2. REVLIMID [Suspect]
     Active Substance: LENALIDOMIDE
     Route: 048
     Dates: start: 202203
  3. REVLIMID [Suspect]
     Active Substance: LENALIDOMIDE
     Route: 058
     Dates: start: 202203

REACTIONS (8)
  - Muscular weakness [Unknown]
  - Fatigue [Unknown]
  - Peripheral swelling [Unknown]
  - Off label use [Unknown]
  - Asthenia [Unknown]
  - Clumsiness [Unknown]
  - Memory impairment [Unknown]
  - Skin discolouration [Unknown]
